FAERS Safety Report 21060089 (Version 1)
Quarter: 2022Q3

REPORT INFORMATION
  Report Type: Spontaneous
  Country: US (occurrence: US)
  Receive Date: 20220708
  Receipt Date: 20220708
  Transmission Date: 20221027
  Serious: No
  Sender: FDA-Public Use
  Company Number: US-SA-SAC20220701001940

PATIENT
  Sex: Female

DRUGS (8)
  1. DUPIXENT [Suspect]
     Active Substance: DUPILUMAB
     Indication: Dermatitis atopic
     Route: 058
  2. FLUOXETINE HYDROCHLORIDE [Concomitant]
     Active Substance: FLUOXETINE HYDROCHLORIDE
  3. OPZELURA [Concomitant]
     Active Substance: RUXOLITINIB PHOSPHATE
  4. ADDERALL [Concomitant]
     Active Substance: AMPHETAMINE ASPARTATE\AMPHETAMINE SULFATE\DEXTROAMPHETAMINE SACCHARATE\DEXTROAMPHETAMINE SULFATE
  5. LISINOPRIL [Concomitant]
     Active Substance: LISINOPRIL
  6. MAGNESIUM [Concomitant]
     Active Substance: MAGNESIUM
  7. VITAMIN C [Concomitant]
     Active Substance: ASCORBIC ACID
  8. MINERALS\VITAMINS [Concomitant]
     Active Substance: MINERALS\VITAMINS

REACTIONS (6)
  - Eye irritation [Unknown]
  - Dermatitis atopic [Unknown]
  - Erythema [Unknown]
  - Skin warm [Unknown]
  - Skin fissures [Unknown]
  - Pruritus [Unknown]
